FAERS Safety Report 22606752 (Version 1)
Quarter: 2023Q2

REPORT INFORMATION
  Report Type: Spontaneous
  Country: US (occurrence: US)
  Receive Date: 20230615
  Receipt Date: 20230615
  Transmission Date: 20230722
  Serious: No
  Sender: FDA-Public Use
  Company Number: US-PFIZER INC-PV202300103831

PATIENT
  Age: 65 Year
  Sex: Female

DRUGS (1)
  1. XELJANZ [Suspect]
     Active Substance: TOFACITINIB CITRATE
     Indication: Synovitis
     Dosage: 5 MG, 2X/DAY
     Dates: start: 201608

REACTIONS (4)
  - Osteoarthritis [Unknown]
  - Nodal osteoarthritis [Unknown]
  - Joint swelling [Unknown]
  - Off label use [Unknown]
